FAERS Safety Report 14516022 (Version 2)
Quarter: 2018Q4

REPORT INFORMATION
  Report Type: Report from Study
  Country: US (occurrence: US)
  Receive Date: 20180211
  Receipt Date: 20181119
  Transmission Date: 20190204
  Serious: Yes (Other)
  Sender: FDA-Public Use
  Company Number: US-PUMA BIOTECHNOLOGY, LTD.-2017US015672

PATIENT

DRUGS (3)
  1. NERLYNX [Suspect]
     Active Substance: NERATINIB
     Dosage: 120 MG, DAILY
     Route: 048
     Dates: start: 20181017, end: 201810
  2. NERLYNX [Suspect]
     Active Substance: NERATINIB
     Dosage: 120MG, DAILY
     Route: 048
     Dates: start: 20171127, end: 20181016
  3. NERLYNX [Suspect]
     Active Substance: NERATINIB
     Indication: BREAST CANCER
     Dosage: 240 MG, DAILY
     Route: 048
     Dates: start: 20171101, end: 20171108

REACTIONS (7)
  - Pharyngitis [Unknown]
  - Rash [Recovering/Resolving]
  - Abdominal pain [Unknown]
  - Product dose omission [Unknown]
  - Sjogren^s syndrome [Unknown]
  - Diarrhoea [Recovering/Resolving]
  - Nausea [Not Recovered/Not Resolved]

NARRATIVE: CASE EVENT DATE: 201711
